FAERS Safety Report 8519341-1 (Version None)
Quarter: 2012Q3

REPORT INFORMATION
  Report Type: 
  Country: None (occurrence: None)
  Receive Date: 20120718
  Receipt Date: 20120709
  Transmission Date: 20120928
  Serious: Yes (Other)
  Sender: FDA-Public Use
  Company Number: GB-FRI-1000021144

PATIENT
  Age: 22 Year
  Sex: Female

DRUGS (6)
  1. ORPHENADRINE CITRATE [Concomitant]
     Dosage: 150 MG
     Dates: start: 20101111
  2. ESCITALOPRAM [Suspect]
     Dosage: 20 MG
     Route: 048
     Dates: start: 20101230, end: 20110519
  3. ESCITALOPRAM [Suspect]
     Dosage: DOSE REDUCED
     Route: 048
     Dates: start: 20110520
  4. RISPERIDONE [Suspect]
     Dosage: 1.5 MG
     Route: 048
     Dates: start: 20100708, end: 20100929
  5. ESCITALOPRAM [Suspect]
     Indication: ANXIETY
     Dosage: 10 MG
     Route: 048
     Dates: start: 20101125, end: 20101229
  6. RISPERIDONE [Suspect]
     Indication: DISTURBANCE IN SOCIAL BEHAVIOUR
     Dosage: VARIABLE DOSES BETWEEN 0.25MG AND 1MG DAILY
     Route: 048
     Dates: start: 20100415, end: 20100707

REACTIONS (3)
  - DISTURBANCE IN SOCIAL BEHAVIOUR [None]
  - OCULOGYRIC CRISIS [None]
  - ANXIETY [None]
